FAERS Safety Report 15223259 (Version 2)
Quarter: 2018Q4

REPORT INFORMATION
  Report Type: Not Available
  Country: US (occurrence: US)
  Receive Date: 20180731
  Receipt Date: 20181005
  Transmission Date: 20190204
  Serious: Yes (Death)
  Sender: FDA-Public Use
  Company Number: US-NEUROCRINE BIOSCIENCES INC.-2018NBI02238

PATIENT
  Age: 68 Year
  Sex: Female

DRUGS (38)
  1. INGREZZA [Suspect]
     Active Substance: VALBENAZINE
     Indication: TARDIVE DYSKINESIA
     Route: 048
     Dates: start: 20171218, end: 20171224
  2. ARTIFICIAL TEARS [Concomitant]
     Active Substance: GLYCERIN\HYPROMELLOSES\POLYETHYLENE GLYCOL 400
  3. ASPIRIN 81 [Concomitant]
     Active Substance: ASPIRIN
  4. DESITIN [Concomitant]
     Active Substance: ZINC OXIDE
  5. CALCIUM CARBONATE WITH VITAMIN D 500 MG [Concomitant]
  6. INGREZZA [Suspect]
     Active Substance: VALBENAZINE
     Route: 048
     Dates: start: 20171225, end: 20180717
  7. BISACODYL EC [Concomitant]
     Active Substance: BISACODYL
  8. IBUPROFEN. [Concomitant]
     Active Substance: IBUPROFEN
  9. LANOLIN. [Concomitant]
     Active Substance: LANOLIN
  10. LOVENOX [Concomitant]
     Active Substance: ENOXAPARIN SODIUM
  11. FIBER [Concomitant]
     Active Substance: PSYLLIUM HUSK
  12. PETROLATUM. [Concomitant]
     Active Substance: PETROLATUM
  13. CLONAZEPAM. [Concomitant]
     Active Substance: CLONAZEPAM
  14. COAL TAR. [Concomitant]
     Active Substance: COAL TAR
  15. LEVALBUTEROL MDI WITH SPACER [Concomitant]
  16. LUBRIDERM [Concomitant]
     Active Substance: AVOBENZONE\HOMOSALATE\OCTISALATE\OCTOCRYLENE\OXYBENZONE
  17. LURASIDONE [Concomitant]
     Active Substance: LURASIDONE
  18. QUETIAPINE. [Concomitant]
     Active Substance: QUETIAPINE
  19. QUETIAPINE. [Concomitant]
     Active Substance: QUETIAPINE
  20. SERTRALINE [Concomitant]
     Active Substance: SERTRALINE HYDROCHLORIDE
  21. TRAMADOL. [Concomitant]
     Active Substance: TRAMADOL
  22. HUMALOG [Concomitant]
     Active Substance: INSULIN LISPRO
  23. ALAMAG PLUS [Concomitant]
  24. CITRATE OF MAGNESIUM [Concomitant]
     Active Substance: MAGNESIUM CITRATE
  25. GABAPENTIN. [Concomitant]
     Active Substance: GABAPENTIN
  26. LANSOPRAZOLE SUSPENSION 30 MG [Concomitant]
  27. MECLIZINE [Concomitant]
     Active Substance: MECLIZINE HYDROCHLORIDE
  28. OLANZAPINE. [Concomitant]
     Active Substance: OLANZAPINE
  29. LACTULOSE. [Concomitant]
     Active Substance: LACTULOSE
  30. MAALOX ANTACID [Concomitant]
     Active Substance: ALUMINUM HYDROXIDE\DIMETHICONE\MAGNESIUM HYDROXIDE
  31. CALCIUM 500+D [Concomitant]
     Active Substance: CALCIUM\VITAMIN D
  32. LISINOPRIL. [Concomitant]
     Active Substance: LISINOPRIL
  33. SENNA LAXATIVE [Concomitant]
     Active Substance: SENNOSIDES
  34. PROSTAT SUGAR FREE [Concomitant]
  35. TYLENOL [Concomitant]
     Active Substance: ACETAMINOPHEN
  36. CHLORHEXIDINE [Concomitant]
     Active Substance: CHLORHEXIDINE
  37. GLUCAGON. [Concomitant]
     Active Substance: GLUCAGON
  38. LANTUS [Concomitant]
     Active Substance: INSULIN GLARGINE

REACTIONS (2)
  - Sepsis [Fatal]
  - Paranoia [Unknown]

NARRATIVE: CASE EVENT DATE: 20180106
